FAERS Safety Report 16102189 (Version 2)
Quarter: 2019Q4

REPORT INFORMATION
  Report Type: Spontaneous
  Country: US (occurrence: US)
  Receive Date: 20190321
  Receipt Date: 20191014
  Transmission Date: 20200122
  Serious: Yes (Other)
  Sender: FDA-Public Use
  Company Number: US-BAUSCH-BL-2019-008673

PATIENT
  Age: 9 Decade
  Sex: Female

DRUGS (1)
  1. TIMOPTIC [Suspect]
     Active Substance: TIMOLOL MALEATE
     Indication: PRODUCT USED FOR UNKNOWN INDICATION
     Route: 065
     Dates: start: 201902, end: 2019

REACTIONS (3)
  - Anxiety [Unknown]
  - Blindness [Unknown]
  - Head discomfort [Unknown]

NARRATIVE: CASE EVENT DATE: 2019
